FAERS Safety Report 4913635-4 (Version None)
Quarter: 2006Q1

REPORT INFORMATION
  Report Type: 
  Country: None (occurrence: None)
  Receive Date: 20060214
  Receipt Date: 20060214
  Transmission Date: 20060701
  Serious: Yes (Hospitalization)
  Sender: FDA-Public Use
  Company Number: None

PATIENT
  Sex: Male

DRUGS (6)
  1. IMATINIB MESYLATE  100MG CAPSULES, NOVARTIS (GLEEVEC) [Suspect]
     Indication: GLIOBLASTOMA MULTIFORME
     Dosage: 500 MG PO, BID DAYS 1-8 PER CYCLE
     Route: 048
     Dates: start: 20051103, end: 20060204
  2. TEMOZOLOMIDE, SCHERING-PLOUGH [Suspect]
     Indication: GLIOBLASTOMA MULTIFORME
     Dosage: 400MG DAILY, PO DAYS 4-8 PER CYCLE
     Dates: start: 20051106, end: 20060204
  3. FAMOTIDINE [Concomitant]
  4. TRILEPTAL [Concomitant]
  5. DILANTIN [Concomitant]
  6. MEGACE [Concomitant]

REACTIONS (3)
  - ABDOMINAL PAIN [None]
  - DYSURIA [None]
  - URINARY RETENTION [None]
